FAERS Safety Report 10669846 (Version 1)
Quarter: 2014Q4

REPORT INFORMATION
  Report Type: Spontaneous
  Country: US (occurrence: US)
  Receive Date: 20141222
  Receipt Date: 20141222
  Transmission Date: 20150529
  Serious: Yes (Hospitalization)
  Sender: FDA-Public Use
  Company Number: US-ELI_LILLY_AND_COMPANY-US201412007751

PATIENT
  Sex: Male

DRUGS (1)
  1. HUMALOG [Suspect]
     Active Substance: INSULIN LISPRO
     Indication: TYPE 1 DIABETES MELLITUS
     Dosage: 12 U, TID
     Route: 065
     Dates: start: 2012

REACTIONS (4)
  - Cataract operation complication [Unknown]
  - Hand fracture [Unknown]
  - Cataract [Unknown]
  - Laceration [Unknown]

NARRATIVE: CASE EVENT DATE: 2013
